FAERS Safety Report 24241760 (Version 1)
Quarter: 2024Q3

REPORT INFORMATION
  Report Type: Spontaneous
  Country: US (occurrence: US)
  Receive Date: 20240823
  Receipt Date: 20240823
  Transmission Date: 20241016
  Serious: No
  Sender: ELI LILLY AND CO
  Company Number: US-ELI_LILLY_AND_COMPANY-US202408012910

PATIENT
  Age: 68 Year
  Sex: Male
  Weight: 136 kg

DRUGS (5)
  1. TRULICITY [Suspect]
     Active Substance: DULAGLUTIDE
     Indication: Glucose tolerance impaired
     Dosage: 0.75 MG, UNKNOWN
     Route: 058
     Dates: start: 202405
  2. TRULICITY [Suspect]
     Active Substance: DULAGLUTIDE
     Indication: Weight decreased
  3. TRULICITY [Suspect]
     Active Substance: DULAGLUTIDE
     Indication: Glucose tolerance impaired
     Dosage: 1.5 MG, UNKNOWN
     Route: 058
  4. TRULICITY [Suspect]
     Active Substance: DULAGLUTIDE
     Indication: Weight decreased
  5. METFORMIN [Concomitant]
     Active Substance: METFORMIN HYDROCHLORIDE
     Indication: Product used for unknown indication

REACTIONS (5)
  - Arthralgia [Not Recovered/Not Resolved]
  - Off label use [Unknown]
  - Muscle fatigue [Not Recovered/Not Resolved]
  - Myalgia [Not Recovered/Not Resolved]
  - Constipation [Recovered/Resolved]
